FAERS Safety Report 4859238-1 (Version None)
Quarter: 2005Q4

REPORT INFORMATION
  Report Type: 
  Country: None (occurrence: None)
  Receive Date: 20051219
  Receipt Date: 20051207
  Transmission Date: 20060501
  Serious: Yes (Hospitalization)
  Sender: FDA-Public Use
  Company Number: FR-AMGEN-UK160518

PATIENT
  Sex: Male

DRUGS (3)
  1. ARANESP [Suspect]
     Indication: ANAEMIA OF MALIGNANT DISEASE
     Route: 058
     Dates: start: 20050930
  2. ONDANSETRON [Suspect]
     Route: 065
  3. ALIMTA [Suspect]
     Route: 042
     Dates: start: 20050930, end: 20051024

REACTIONS (3)
  - DERMATITIS BULLOUS [None]
  - EPIDERMOLYSIS [None]
  - ERYTHEMA [None]
